FAERS Safety Report 21437652 (Version 1)
Quarter: 2022Q4

REPORT INFORMATION
  Report Type: Spontaneous
  Country: CN (occurrence: CN)
  Receive Date: 20221011
  Receipt Date: 20221011
  Transmission Date: 20230113
  Serious: Yes (Other)
  Sender: FDA-Public Use
  Company Number: CN-SUN PHARMACEUTICAL INDUSTRIES LTD-2022R1-357815

PATIENT
  Age: 45 Year
  Sex: Male

DRUGS (3)
  1. DOXORUBICIN [Suspect]
     Active Substance: DOXORUBICIN
     Indication: Inflammatory myofibroblastic tumour
     Dosage: 20 MILLIGRAM DAY 1
     Route: 065
  2. IMATINIB [Suspect]
     Active Substance: IMATINIB
     Indication: Inflammatory myofibroblastic tumour
     Dosage: 400 MILLIGRAM, DAILY
     Route: 065
  3. IFOSFAMIDE [Suspect]
     Active Substance: IFOSFAMIDE
     Indication: Inflammatory myofibroblastic tumour
     Dosage: 1.8 GRAM DAY 1 TO DAY 3, REPEATED EVERY 21 DAYS FOR TWO CYCLES
     Route: 065

REACTIONS (1)
  - Neoplasm progression [Unknown]
